FAERS Safety Report 6228846-8 (Version None)
Quarter: 2009Q2

REPORT INFORMATION
  Report Type: 
  Country: None (occurrence: None)
  Receive Date: 20090615
  Receipt Date: 20071121
  Transmission Date: 20091009
  Serious: Yes (Other)
  Sender: FDA-Public Use
  Company Number: US-ASTRAZENECA-2006UW27757

PATIENT
  Age: 326 Month
  Sex: Male
  Weight: 81.6 kg

DRUGS (10)
  1. SEROQUEL [Suspect]
     Indication: BIPOLAR DISORDER
     Route: 048
     Dates: start: 19980201
  2. SEROQUEL [Suspect]
     Route: 048
     Dates: start: 20030701
  3. METHADONE HCL [Concomitant]
     Dates: start: 19990101, end: 20070101
  4. PAXIL CR [Concomitant]
     Dates: start: 20030701
  5. CLONAZEPAM [Concomitant]
     Dates: start: 20030701
  6. NOVOLIN N [Concomitant]
     Dates: start: 20000414
  7. HUMULIN R [Concomitant]
     Dates: start: 19970609
  8. DEPAKOTE [Concomitant]
     Dates: start: 20040326
  9. HYDROXYZINE PAMOATE [Concomitant]
     Dates: start: 19981021
  10. LANTUS [Concomitant]
     Dates: start: 20021220

REACTIONS (4)
  - DIABETES MELLITUS [None]
  - DIABETIC COMA [None]
  - DIABETIC KETOACIDOSIS [None]
  - LEG AMPUTATION [None]
